FAERS Safety Report 9552873 (Version 2)
Quarter: 2013Q3

REPORT INFORMATION
  Report Type: Spontaneous
  Country: US (occurrence: US)
  Receive Date: 20130925
  Receipt Date: 20130925
  Transmission Date: 20140515
  Serious: No
  Sender: FDA-Public Use
  Company Number: US-PURDUE-USA-2013-0102150

PATIENT
  Sex: Male

DRUGS (4)
  1. MS CONTIN TABLETS [Suspect]
     Indication: PAIN
     Dosage: 45 MG, HS (15MG AND 30MG TABLETS)
     Route: 048
  2. MS CONTIN TABLETS [Suspect]
     Dosage: 200 MG, DAILY
     Route: 048
  3. MS CONTIN TABLETS [Suspect]
     Dosage: 15 MG, DAILY
     Route: 048
  4. MS CONTIN TABLETS [Suspect]
     Dosage: 30 MG, DAILY
     Route: 048

REACTIONS (2)
  - Inappropriate schedule of drug administration [Unknown]
  - Inadequate analgesia [Unknown]
